FAERS Safety Report 6633874-4 (Version None)
Quarter: 2010Q1

REPORT INFORMATION
  Report Type: 
  Country: None (occurrence: None)
  Receive Date: 20100315
  Receipt Date: 20100308
  Transmission Date: 20100710
  Serious: Yes (Life-Threatening, Other)
  Sender: FDA-Public Use
  Company Number: JP-JNJFOC-20090608757

PATIENT
  Sex: Female

DRUGS (6)
  1. DOXORUBICIN HCL [Suspect]
     Indication: OVARIAN CANCER RECURRENT
     Route: 042
  2. KYTRIL [Concomitant]
     Indication: ANTIEMETIC SUPPORTIVE CARE
     Route: 042
  3. PYDOXAL [Concomitant]
     Indication: PALMAR-PLANTAR ERYTHRODYSAESTHESIA SYNDROME
     Route: 048
  4. ALOSENN [Concomitant]
     Route: 048
  5. GLYCEREB [Concomitant]
     Route: 042
  6. ALEVIATIN [Concomitant]
     Route: 042

REACTIONS (1)
  - CEREBRAL INFARCTION [None]
